FAERS Safety Report 6233541-5 (Version None)
Quarter: 2009Q2

REPORT INFORMATION
  Report Type: 
  Country: None (occurrence: None)
  Receive Date: 20090617
  Receipt Date: 20090609
  Transmission Date: 20091009
  Serious: Yes (Other)
  Sender: FDA-Public Use
  Company Number: ZM-GILEAD-2009-0022516

PATIENT
  Age: 27 Year
  Sex: Female

DRUGS (4)
  1. TRUVADA [Suspect]
     Route: 048
     Dates: start: 20061214, end: 20080507
  2. EMTRIVA [Concomitant]
     Route: 048
     Dates: start: 20080507
  3. KALETRA [Concomitant]
     Dates: start: 20061214
  4. RETROVIR [Concomitant]
     Route: 048
     Dates: start: 20080507

REACTIONS (1)
  - STILLBIRTH [None]
